FAERS Safety Report 16682018 (Version 1)
Quarter: 2019Q3

REPORT INFORMATION
  Report Type: Spontaneous
  Country: US (occurrence: US)
  Receive Date: 20190624
  Receipt Date: 20190624
  Transmission Date: 20191004
  Serious: No
  Sender: FDA-Public Use
  Company Number: None

PATIENT
  Age: 46 Year
  Sex: Female

DRUGS (2)
  1. BOTOX [Suspect]
     Active Substance: ONABOTULINUMTOXINA
     Indication: MYOSITIS
     Dates: start: 201906
  2. BOTOX [Suspect]
     Active Substance: ONABOTULINUMTOXINA
     Indication: JAW DISORDER
     Dates: start: 201906

REACTIONS (1)
  - Off label use [None]

NARRATIVE: CASE EVENT DATE: 20190624
